FAERS Safety Report 20853222 (Version 1)
Quarter: 2022Q2

REPORT INFORMATION
  Report Type: Spontaneous
  Country: US (occurrence: None)
  Receive Date: 20220519
  Receipt Date: 20220519
  Transmission Date: 20220721
  Serious: Yes (Death)
  Sender: FDA-Public Use
  Company Number: None

PATIENT
  Sex: Female
  Weight: 75.75 kg

DRUGS (19)
  1. TEMOZOLOMIDE [Suspect]
     Active Substance: TEMOZOLOMIDE
     Indication: Lung neoplasm malignant
     Dosage: OTHER FREQUENCY : DAILY3WEEKS;?
     Route: 048
     Dates: start: 202204, end: 20220427
  2. ACETAMINOPOHEN [Concomitant]
  3. ALPRAZOLAM [Concomitant]
     Active Substance: ALPRAZOLAM
  4. AMLODIPINE [Concomitant]
     Active Substance: AMLODIPINE BESYLATE
  5. ELIQUIS [Concomitant]
     Active Substance: APIXABAN
  6. ATORVASTATIN [Concomitant]
  7. CALCIUM PLUS VITAMIN D3 600-400 [Concomitant]
  8. CETIRIZINE [Concomitant]
  9. FLONASE [Concomitant]
     Active Substance: FLUTICASONE PROPIONATE
  10. LOPERAMIDE [Concomitant]
     Active Substance: LOPERAMIDE
  11. MAGNESIUM OXIDE [Concomitant]
     Active Substance: MAGNESIUM OXIDE
  12. METOPROLOL [Concomitant]
     Active Substance: METOPROLOL
  13. NICTOTINE PATCH [Concomitant]
  14. ONDANSETRON [Concomitant]
     Active Substance: ONDANSETRON
  15. POTASSIUM CHLORIDE [Concomitant]
  16. TORSEMIDE [Concomitant]
     Active Substance: TORSEMIDE
  17. VITAMIN E [Concomitant]
     Active Substance: .ALPHA.-TOCOPHEROL
  18. TRAMADOL [Concomitant]
     Active Substance: TRAMADOL
  19. TUMERIC/GINGER/HEMP SEED EXTRACT [Concomitant]

REACTIONS (1)
  - Death [None]
